FAERS Safety Report 7804763-4 (Version None)
Quarter: 2011Q4

REPORT INFORMATION
  Report Type: 
  Country: None (occurrence: None)
  Receive Date: 20111010
  Receipt Date: 20110927
  Transmission Date: 20120403
  Serious: Yes (Hospitalization, Other)
  Sender: FDA-Public Use
  Company Number: US-CELGENEUS-163-21880-11081139

PATIENT
  Sex: Female
  Weight: 56.75 kg

DRUGS (7)
  1. REVLIMID [Suspect]
     Indication: MULTIPLE MYELOMA
     Dosage: 15 MILLIGRAM
     Route: 048
     Dates: start: 20070401
  2. ANTIBIOTICS [Concomitant]
     Route: 065
  3. PAIN MEDICATION [Concomitant]
     Route: 065
  4. CYMBALTA [Concomitant]
     Route: 065
  5. KLONOPIN [Concomitant]
     Route: 065
  6. MULTI-VITAMINS [Concomitant]
     Route: 065
  7. DEXAMETHASONE [Concomitant]
     Route: 065

REACTIONS (1)
  - BONE SARCOMA [None]
